FAERS Safety Report 19967890 (Version 1)
Quarter: 2021Q4

REPORT INFORMATION
  Report Type: Spontaneous
  Country: US (occurrence: US)
  Receive Date: 20211015
  Receipt Date: 20211015
  Transmission Date: 20220303
  Serious: No
  Sender: FDA-Public Use
  Company Number: None

PATIENT
  Age: 39 Year
  Sex: Male

DRUGS (1)
  1. HUMIRA [Suspect]
     Active Substance: ADALIMUMAB
     Indication: Psoriasis
     Route: 058
     Dates: start: 20210108

REACTIONS (4)
  - Needle issue [None]
  - Accidental exposure to product [None]
  - Condition aggravated [None]
  - Drug dose omission by device [None]

NARRATIVE: CASE EVENT DATE: 20210903
